FAERS Safety Report 17735086 (Version 1)
Quarter: 2020Q2

REPORT INFORMATION
  Report Type: Other
  Country: LB (occurrence: LB)
  Receive Date: 20200501
  Receipt Date: 20200501
  Transmission Date: 20200714
  Serious: Yes (Hospitalization, Other)
  Sender: FDA-Public Use
  Company Number: LB-VITRUVIAS THERAPEUTICS-2083414

PATIENT
  Age: 65 Year
  Sex: Male

DRUGS (1)
  1. LIDOCAINE. [Suspect]
     Active Substance: LIDOCAINE

REACTIONS (3)
  - Palpitations [Recovered/Resolved]
  - Cardiotoxicity [Recovered/Resolved]
  - Dyspnoea [Recovered/Resolved]
